FAERS Safety Report 4274102-7 (Version None)
Quarter: 2004Q1

REPORT INFORMATION
  Report Type: 
  Country: None (occurrence: None)
  Receive Date: 20040120
  Receipt Date: 20031222
  Transmission Date: 20041129
  Serious: Yes (Life-Threatening, Hospitalization, Disabling)
  Sender: FDA-Public Use
  Company Number: FR-GLAXOSMITHKLINE-B0318367A

PATIENT
  Age: 55 Year
  Sex: Male
  Weight: 96 kg

DRUGS (1)
  1. ZYBAN [Suspect]
     Indication: EX-SMOKER
     Dosage: 150MG PER DAY
     Route: 048
     Dates: start: 20031201, end: 20031203

REACTIONS (3)
  - CORONARY ARTERY STENOSIS [None]
  - LOSS OF CONSCIOUSNESS [None]
  - MYOCARDIAL INFARCTION [None]
